FAERS Safety Report 14711198 (Version 3)
Quarter: 2018Q3

REPORT INFORMATION
  Report Type: Spontaneous
  Country: US (occurrence: US)
  Receive Date: 20180403
  Receipt Date: 20180824
  Transmission Date: 20181010
  Serious: Yes (Hospitalization, Disabling, Other)
  Sender: FDA-Public Use
  Company Number: US-009507513-1804USA000388

PATIENT
  Sex: Female
  Weight: 90.7 kg

DRUGS (1)
  1. NUVARING [Suspect]
     Active Substance: ETHINYL ESTRADIOL\ETONOGESTREL
     Indication: CONTRACEPTION
     Dosage: UNK
     Route: 067
     Dates: start: 201601, end: 20160412

REACTIONS (11)
  - Pulmonary embolism [Unknown]
  - Vaginal haemorrhage [Recovering/Resolving]
  - Ureterolithiasis [Unknown]
  - Swelling [Unknown]
  - Anaemia [Recovering/Resolving]
  - Costochondritis [Unknown]
  - Infection [Unknown]
  - Pneumonia [Unknown]
  - Thrombosis [Unknown]
  - Internal haemorrhage [Unknown]
  - International normalised ratio increased [Recovered/Resolved]

NARRATIVE: CASE EVENT DATE: 201604
